FAERS Safety Report 21951148 (Version 3)
Quarter: 2023Q1

REPORT INFORMATION
  Report Type: Spontaneous
  Country: IT (occurrence: IT)
  Receive Date: 20230203
  Receipt Date: 20230220
  Transmission Date: 20230417
  Serious: Yes (Hospitalization, Other)
  Sender: FDA-Public Use
  Company Number: IT-OTSUKA-2023_000921AA

PATIENT
  Age: 72 Year
  Sex: Male

DRUGS (11)
  1. DACOGEN [Suspect]
     Active Substance: DECITABINE
     Indication: Acute myeloid leukaemia
     Dosage: 20 MG/M2
     Route: 065
     Dates: start: 20221003
  2. VENETOCLAX [Suspect]
     Active Substance: VENETOCLAX
     Indication: Acute myeloid leukaemia
     Dosage: 100 MG
     Route: 065
     Dates: start: 20221003, end: 20221226
  3. VENETOCLAX [Suspect]
     Active Substance: VENETOCLAX
     Dosage: UNK
     Route: 048
     Dates: start: 20221107, end: 20221118
  4. BACTRIM [Concomitant]
     Active Substance: SULFAMETHOXAZOLE\TRIMETHOPRIM
     Indication: Antibiotic prophylaxis
     Dosage: 1 DOSAGE FORMS 1 IN 0.33 WK
     Route: 048
     Dates: start: 20221203
  5. POSACONAZOLE [Concomitant]
     Active Substance: POSACONAZOLE
     Indication: Antifungal treatment
     Dosage: 300 MILLIGRAM
     Route: 048
     Dates: start: 20221003
  6. AVODART [Concomitant]
     Active Substance: DUTASTERIDE
     Indication: Benign prostatic hyperplasia
     Dosage: 0.5 MG
     Route: 065
  7. AMISULPRIDE [Concomitant]
     Active Substance: AMISULPRIDE
     Indication: Depression
     Dosage: 50 MG
     Route: 065
  8. ACYCLOVIR [Concomitant]
     Active Substance: ACYCLOVIR
     Indication: Antiviral prophylaxis
     Dosage: 400 X 2 MG DAILY
     Route: 048
     Dates: start: 20221203
  9. MIRTAZAPINE [Concomitant]
     Active Substance: MIRTAZAPINE
     Indication: Depression
     Dosage: 15 MG
     Route: 065
  10. ALLOPURINOL [Concomitant]
     Active Substance: ALLOPURINOL
     Indication: Prophylaxis
     Dosage: 300 MG THEN 150 MG DAILY
     Route: 065
     Dates: start: 20221003
  11. TAMSULOSIN [Concomitant]
     Active Substance: TAMSULOSIN
     Indication: Benign prostatic hyperplasia
     Dosage: 0.4 MG
     Route: 065

REACTIONS (11)
  - Cholestasis [Unknown]
  - Transaminases increased [Unknown]
  - Pneumonitis [Unknown]
  - Pericardial effusion [Unknown]
  - Fatigue [Not Recovered/Not Resolved]
  - Pancytopenia [Not Recovered/Not Resolved]
  - Leukopenia [Unknown]
  - Cytopenia [Not Recovered/Not Resolved]
  - Pyrexia [Recovered/Resolved]
  - Thrombocytopenia [Unknown]
  - Neutropenia [Unknown]

NARRATIVE: CASE EVENT DATE: 20221101
